FAERS Safety Report 15699212 (Version 1)
Quarter: 2018Q4

REPORT INFORMATION
  Report Type: Spontaneous
  Country: GB (occurrence: FR)
  Receive Date: 20181207
  Receipt Date: 20181207
  Transmission Date: 20190205
  Serious: Yes (Hospitalization)
  Sender: FDA-Public Use
  Company Number: FR-FRESENIUS KABI-FK201812404

PATIENT
  Age: 45 Year
  Sex: Male

DRUGS (7)
  1. ONDANSETRON (MANUFACTURER UNKNOWN) [Suspect]
     Active Substance: ONDANSETRON
     Indication: ANTIEMETIC SUPPORTIVE CARE
     Route: 042
     Dates: start: 20181030, end: 20181030
  2. DOCETAXEL. [Suspect]
     Active Substance: DOCETAXEL
     Indication: ADENOCARCINOMA GASTRIC
     Route: 042
     Dates: start: 20181030, end: 20181030
  3. OXALIPLATIN. [Suspect]
     Active Substance: OXALIPLATIN
     Indication: ADENOCARCINOMA GASTRIC
     Route: 042
     Dates: start: 20181030, end: 20181030
  4. ONDANSETRON [Suspect]
     Active Substance: ONDANSETRON
     Indication: ANTIEMETIC SUPPORTIVE CARE
     Route: 048
     Dates: start: 20181030, end: 20181103
  5. APREPITANT. [Suspect]
     Active Substance: APREPITANT
     Indication: ANTIEMETIC SUPPORTIVE CARE
     Dosage: 125MG-80MG-80MG
     Route: 048
     Dates: start: 20181030, end: 20181101
  6. CALCIUM LEVOFOLINATE PENTAHYDRATE [Suspect]
     Active Substance: LEVOLEUCOVORIN CALCIUM
     Indication: CHEMOTHERAPY TOXICITY ATTENUATION
     Route: 042
     Dates: start: 20181030, end: 20181030
  7. PREDNISOLONE. [Suspect]
     Active Substance: PREDNISOLONE
     Indication: ALLERGY PROPHYLAXIS
     Route: 042
     Dates: start: 20181030, end: 20181030

REACTIONS (8)
  - Abdominal pain [Recovered/Resolved]
  - Eyelid oedema [Recovered/Resolved]
  - Erythema [Recovered/Resolved]
  - Anxiety [Recovered/Resolved]
  - Paraesthesia [Recovered/Resolved]
  - Oedema peripheral [Recovered/Resolved]
  - Nausea [Recovered/Resolved]
  - Hypersensitivity [Recovered/Resolved]

NARRATIVE: CASE EVENT DATE: 20181030
